FAERS Safety Report 15601342 (Version 1)
Quarter: 2018Q4

REPORT INFORMATION
  Report Type: Spontaneous
  Country: PT (occurrence: PT)
  Receive Date: 20181109
  Receipt Date: 20181109
  Transmission Date: 20190205
  Serious: Yes (Other)
  Sender: FDA-Public Use
  Company Number: PT-BAXTER-2018BAX027768

PATIENT
  Sex: Female

DRUGS (6)
  1. RITUXIMAB. [Suspect]
     Active Substance: RITUXIMAB
     Indication: NON-HODGKIN^S LYMPHOMA
     Route: 065
     Dates: start: 20160718
  2. ENDOXAN [Suspect]
     Active Substance: CYCLOPHOSPHAMIDE
     Indication: NON-HODGKIN^S LYMPHOMA
     Route: 065
     Dates: start: 201706, end: 20171102
  3. RITUXIMAB. [Suspect]
     Active Substance: RITUXIMAB
     Route: 065
     Dates: start: 201706, end: 20171102
  4. DOXORUBICIN [Suspect]
     Active Substance: DOXORUBICIN
     Indication: NON-HODGKIN^S LYMPHOMA
     Route: 065
     Dates: start: 201706, end: 20171102
  5. VINCRISTINE [Suspect]
     Active Substance: VINCRISTINE
     Indication: NON-HODGKIN^S LYMPHOMA
     Route: 065
     Dates: start: 201706, end: 20171102
  6. PREDNISOLONE. [Suspect]
     Active Substance: PREDNISOLONE
     Indication: NON-HODGKIN^S LYMPHOMA
     Route: 065
     Dates: start: 201706, end: 20171102

REACTIONS (2)
  - Disease recurrence [Unknown]
  - Pancytopenia [Unknown]

NARRATIVE: CASE EVENT DATE: 201806
